FAERS Safety Report 23833598 (Version 4)
Quarter: 2024Q3

REPORT INFORMATION
  Report Type: Spontaneous
  Country: US (occurrence: US)
  Receive Date: 20240508
  Receipt Date: 20240709
  Transmission Date: 20241017
  Serious: Yes (Other)
  Sender: SANOFI AVENTIS
  Company Number: US-SANOFI-02030368

PATIENT
  Age: 83 Year
  Sex: Female
  Weight: 74 kg

DRUGS (5)
  1. MULTAQ [Suspect]
     Active Substance: DRONEDARONE
     Indication: Atrial fibrillation
     Dosage: 400 MG, BID
     Route: 048
     Dates: start: 20230823, end: 2024
  2. ELIQUIS [Concomitant]
     Active Substance: APIXABAN
     Dosage: 5MG; BID
     Dates: start: 2016
  3. PRALUENT [Concomitant]
     Active Substance: ALIROCUMAB
     Dosage: UNK, QOW
     Dates: start: 2002
  4. ROSUVASTATIN [Concomitant]
     Active Substance: ROSUVASTATIN
     Dosage: 20MG; QD
     Dates: start: 2018
  5. EZETIMIBE [Concomitant]
     Active Substance: EZETIMIBE
     Dosage: 10 MG, QD
     Dates: start: 2020

REACTIONS (6)
  - Atrial fibrillation [Unknown]
  - Dysstasia [Unknown]
  - Hyperhidrosis [Unknown]
  - Nausea [Unknown]
  - Vomiting [Unknown]
  - Drug ineffective [Unknown]
